FAERS Safety Report 15107241 (Version 5)
Quarter: 2020Q3

REPORT INFORMATION
  Report Type: Spontaneous
  Country: FR (occurrence: FR)
  Receive Date: 20180704
  Receipt Date: 20200904
  Transmission Date: 20201102
  Serious: Yes (Disabling)
  Sender: FDA-Public Use
  Company Number: FR-ALLERGAN-1833259US

PATIENT
  Sex: Female
  Weight: 55 kg

DRUGS (1)
  1. BOTOX [Suspect]
     Active Substance: ONABOTULINUMTOXINA
     Indication: BLEPHAROSPASM
     Dosage: 100 UNITS, SINGLE
     Route: 030
     Dates: start: 20160429, end: 20160429

REACTIONS (165)
  - Tourette^s disorder [Not Recovered/Not Resolved]
  - Encephalitis [Not Recovered/Not Resolved]
  - Arthralgia [Not Recovered/Not Resolved]
  - Burning sensation [Not Recovered/Not Resolved]
  - Dermatitis [Not Recovered/Not Resolved]
  - Depression [Not Recovered/Not Resolved]
  - Electric shock [Not Recovered/Not Resolved]
  - Eschar [Recovered/Resolved]
  - Fear of death [Not Recovered/Not Resolved]
  - Genital injury [Not Recovered/Not Resolved]
  - Gingival bleeding [Not Recovered/Not Resolved]
  - Skin laceration [Not Recovered/Not Resolved]
  - Pain in jaw [Not Recovered/Not Resolved]
  - Raynaud^s phenomenon [Not Recovered/Not Resolved]
  - Skin discolouration [Not Recovered/Not Resolved]
  - Vaginal infection [Recovering/Resolving]
  - Haematochezia [Not Recovered/Not Resolved]
  - Anal fissure [Not Recovered/Not Resolved]
  - Haematuria [Not Recovered/Not Resolved]
  - Vision blurred [Recovered/Resolved]
  - Vomiting [Not Recovered/Not Resolved]
  - Malaise [Not Recovered/Not Resolved]
  - Alopecia [Recovered/Resolved]
  - Paraesthesia [Not Recovered/Not Resolved]
  - Dysphonia [Not Recovered/Not Resolved]
  - Nervous system disorder [Not Recovered/Not Resolved]
  - Clonic convulsion [Not Recovered/Not Resolved]
  - Diplopia [Not Recovered/Not Resolved]
  - Cough [Not Recovered/Not Resolved]
  - Formication [Not Recovered/Not Resolved]
  - Genital haemorrhage [Not Recovered/Not Resolved]
  - Genital paraesthesia [Not Recovered/Not Resolved]
  - Haemorrhoids [Not Recovered/Not Resolved]
  - Oestradiol increased [Not Recovered/Not Resolved]
  - Petit mal epilepsy [Not Recovered/Not Resolved]
  - Phonophobia [Not Recovered/Not Resolved]
  - Abscess limb [Not Recovered/Not Resolved]
  - Throat irritation [Recovered/Resolved]
  - Tooth abscess [Not Recovered/Not Resolved]
  - Tooth resorption [Not Recovered/Not Resolved]
  - Vasculitis [Not Recovered/Not Resolved]
  - Eye oedema [Not Recovered/Not Resolved]
  - Mydriasis [Not Recovered/Not Resolved]
  - Hypoaesthesia [Not Recovered/Not Resolved]
  - Ear pruritus [Not Recovered/Not Resolved]
  - Abdominal pain upper [Not Recovered/Not Resolved]
  - Tinnitus [Not Recovered/Not Resolved]
  - Asthenia [Not Recovered/Not Resolved]
  - Asphyxia [Not Recovered/Not Resolved]
  - Torticollis [Not Recovered/Not Resolved]
  - Amnesia [Not Recovered/Not Resolved]
  - Bone disorder [Not Recovered/Not Resolved]
  - Chest pain [Not Recovered/Not Resolved]
  - Cognitive disorder [Not Recovered/Not Resolved]
  - Dyspepsia [Not Recovered/Not Resolved]
  - Hallucination [Not Recovered/Not Resolved]
  - Herpes simplex reactivation [Not Recovered/Not Resolved]
  - Hypoacusis [Not Recovered/Not Resolved]
  - Ocular hypertension [Not Recovered/Not Resolved]
  - Parosmia [Not Recovered/Not Resolved]
  - Trigeminal neuralgia [Not Recovered/Not Resolved]
  - Retinal detachment [Not Recovered/Not Resolved]
  - Ovarian cyst [Not Recovered/Not Resolved]
  - Binocular eye movement disorder [Not Recovered/Not Resolved]
  - Dystonia [Not Recovered/Not Resolved]
  - Trichorrhexis [Not Recovered/Not Resolved]
  - Musculoskeletal stiffness [Not Recovered/Not Resolved]
  - Nausea [Not Recovered/Not Resolved]
  - Headache [Recovered/Resolved]
  - Vertigo [Not Recovered/Not Resolved]
  - Drug hypersensitivity [Not Recovered/Not Resolved]
  - Myalgia [Not Recovered/Not Resolved]
  - Bradycardia [Not Recovered/Not Resolved]
  - Acne [Recovering/Resolving]
  - Confusional state [Not Recovered/Not Resolved]
  - Ear discomfort [Not Recovered/Not Resolved]
  - Excessive cerumen production [Not Recovered/Not Resolved]
  - Eyelash injury [Not Recovered/Not Resolved]
  - Hypergeusia [Not Recovered/Not Resolved]
  - Menopausal symptoms [Not Recovered/Not Resolved]
  - Metrorrhagia [Not Recovered/Not Resolved]
  - Misophonia [Not Recovered/Not Resolved]
  - Premature ageing [Not Recovered/Not Resolved]
  - Psychiatric symptom [Not Recovered/Not Resolved]
  - Skin abrasion [Not Recovered/Not Resolved]
  - Visual acuity reduced [Not Recovered/Not Resolved]
  - Urinary tract pain [Not Recovered/Not Resolved]
  - Foot deformity [Not Recovered/Not Resolved]
  - Hypertonic bladder [Not Recovered/Not Resolved]
  - Nasal dryness [Not Recovered/Not Resolved]
  - Dyspnoea [Recovered/Resolved]
  - Respiratory failure [Not Recovered/Not Resolved]
  - Dysphagia [Recovering/Resolving]
  - Epilepsy [Not Recovered/Not Resolved]
  - Bone pain [Not Recovered/Not Resolved]
  - Decreased immune responsiveness [Not Recovered/Not Resolved]
  - Flushing [Not Recovered/Not Resolved]
  - Hunger [Not Recovered/Not Resolved]
  - Hypersensitivity [Not Recovered/Not Resolved]
  - Insomnia [Not Recovered/Not Resolved]
  - Leiomyoma [Not Recovered/Not Resolved]
  - Muscle spasms [Not Recovered/Not Resolved]
  - Panic attack [Not Recovered/Not Resolved]
  - Skin burning sensation [Not Recovered/Not Resolved]
  - Nervousness [Not Recovered/Not Resolved]
  - Hypothalamo-pituitary disorder [Not Recovered/Not Resolved]
  - Ecchymosis [Not Recovered/Not Resolved]
  - Keratitis [Not Recovered/Not Resolved]
  - Schizophrenia [Not Recovered/Not Resolved]
  - Dysaesthesia [Not Recovered/Not Resolved]
  - Food allergy [Not Recovered/Not Resolved]
  - Hip disarticulation [Not Recovered/Not Resolved]
  - Oesophageal pain [Not Recovered/Not Resolved]
  - Thirst [Not Recovered/Not Resolved]
  - Tooth loss [Not Recovered/Not Resolved]
  - Facial spasm [Not Recovered/Not Resolved]
  - Vascular pseudoaneurysm [Not Recovered/Not Resolved]
  - Throat clearing [Not Recovered/Not Resolved]
  - Myocardial infarction [Not Recovered/Not Resolved]
  - Muscle rupture [Not Recovered/Not Resolved]
  - Thermohyperaesthesia [Not Recovered/Not Resolved]
  - Hemiparesis [Not Recovered/Not Resolved]
  - Dry eye [Not Recovered/Not Resolved]
  - Diplopia [Not Recovered/Not Resolved]
  - Dry mouth [Not Recovered/Not Resolved]
  - Abscess oral [Recovered/Resolved]
  - Balance disorder [Not Recovered/Not Resolved]
  - Disorientation [Not Recovered/Not Resolved]
  - Eye pain [Not Recovered/Not Resolved]
  - Feeding disorder [Not Recovered/Not Resolved]
  - Hallucination, auditory [Not Recovered/Not Resolved]
  - Hyperacusis [Not Recovered/Not Resolved]
  - Hyperhidrosis [Not Recovered/Not Resolved]
  - Joint dislocation [Not Recovered/Not Resolved]
  - Loss of libido [Not Recovered/Not Resolved]
  - Musculoskeletal chest pain [Not Recovered/Not Resolved]
  - Peripheral coldness [Not Recovered/Not Resolved]
  - Tachycardia [Not Recovered/Not Resolved]
  - Throat irritation [Not Recovered/Not Resolved]
  - Migraine [Not Recovered/Not Resolved]
  - Urinary tract infection [Not Recovered/Not Resolved]
  - Fatigue [Not Recovered/Not Resolved]
  - Photophobia [Not Recovered/Not Resolved]
  - Erythema multiforme [Not Recovered/Not Resolved]
  - Pruritus [Not Recovered/Not Resolved]
  - Tinnitus [Recovered/Resolved]
  - Dysphagia [Not Recovered/Not Resolved]
  - Asthenopia [Not Recovered/Not Resolved]
  - Bronchial hyperreactivity [Not Recovered/Not Resolved]
  - Behaviour disorder [Not Recovered/Not Resolved]
  - Dental dysaesthesia [Not Recovered/Not Resolved]
  - Gastrointestinal pain [Not Recovered/Not Resolved]
  - Limb discomfort [Not Recovered/Not Resolved]
  - Oculogyric crisis [Not Recovered/Not Resolved]
  - Oral discomfort [Not Recovered/Not Resolved]
  - Oropharyngeal pain [Not Recovered/Not Resolved]
  - Polyneuropathy [Not Recovered/Not Resolved]
  - Skin haemorrhage [Not Recovered/Not Resolved]
  - Synaesthesia [Not Recovered/Not Resolved]
  - Tendonitis [Not Recovered/Not Resolved]
  - Vagus nerve disorder [Not Recovered/Not Resolved]
  - Constipation [Not Recovered/Not Resolved]
  - Angina pectoris [Not Recovered/Not Resolved]
  - Madarosis [Not Recovered/Not Resolved]
  - Rash [Not Recovered/Not Resolved]

NARRATIVE: CASE EVENT DATE: 2016
